FAERS Safety Report 10287338 (Version 2)
Quarter: 2014Q3

REPORT INFORMATION
  Report Type: Spontaneous
  Country: JP (occurrence: JP)
  Receive Date: 20140709
  Receipt Date: 20140828
  Transmission Date: 20150326
  Serious: Yes (Hospitalization)
  Sender: FDA-Public Use
  Company Number: JP-SA-2014SA087940

PATIENT
  Age: 84 Year
  Sex: Male

DRUGS (5)
  1. SARPOGRELATE [Suspect]
     Active Substance: SARPOGRELATE
     Indication: ANTIPLATELET THERAPY
     Route: 065
  2. CLOPIDOGREL BISULFATE. [Suspect]
     Active Substance: CLOPIDOGREL BISULFATE
     Indication: ANTIPLATELET THERAPY
     Route: 065
  3. CORTICOSTEROID NOS [Suspect]
     Active Substance: CORTICOSTEROID NOS
     Indication: RHEUMATOID ARTHRITIS
     Route: 048
  4. CILOSTAZOL. [Suspect]
     Active Substance: CILOSTAZOL
     Indication: ANTIPLATELET THERAPY
     Route: 065
  5. COUMADIN [Suspect]
     Active Substance: WARFARIN SODIUM
     Indication: ATRIAL FIBRILLATION
     Route: 065

REACTIONS (11)
  - Pericardial effusion [Recovered/Resolved]
  - Cardiac tamponade [Recovered/Resolved]
  - Blood pressure decreased [Recovered/Resolved]
  - Heart rate irregular [Recovered/Resolved]
  - International normalised ratio increased [Recovered/Resolved]
  - Peripheral coldness [Recovered/Resolved]
  - Platelet count decreased [Recovered/Resolved]
  - Chest discomfort [Recovered/Resolved]
  - Haemothorax [Recovered/Resolved]
  - Prothrombin time prolonged [Recovered/Resolved]
  - Fibrin D dimer increased [Recovered/Resolved]
